FAERS Safety Report 23093579 (Version 1)
Quarter: 2023Q4

REPORT INFORMATION
  Report Type: Spontaneous
  Country: US (occurrence: None)
  Receive Date: 20231023
  Receipt Date: 20231023
  Transmission Date: 20240110
  Serious: Yes (Other)
  Sender: FDA-Public Use
  Company Number: US-SUPERNUS Pharmaceuticals, Inc.-SUP202308-003354

PATIENT
  Sex: Female

DRUGS (2)
  1. QELBREE [Suspect]
     Active Substance: VILOXAZINE HYDROCHLORIDE
     Indication: Product used for unknown indication
     Dosage: 100 MG
     Dates: start: 2023
  2. QELBREE [Suspect]
     Active Substance: VILOXAZINE HYDROCHLORIDE
     Dosage: 200 MG
     Dates: start: 2023

REACTIONS (5)
  - Migraine [Unknown]
  - Hypertension [Unknown]
  - Heart rate increased [Unknown]
  - Nausea [Unknown]
  - Therapeutic product effect decreased [Unknown]
